FAERS Safety Report 19966611 (Version 4)
Quarter: 2021Q4

REPORT INFORMATION
  Report Type: Spontaneous
  Country: US (occurrence: US)
  Receive Date: 20211018
  Receipt Date: 20211207
  Transmission Date: 20220303
  Serious: No
  Sender: FDA-Public Use
  Company Number: US-SANOFI-00811408

PATIENT
  Age: 69 Year
  Sex: Female

DRUGS (1)
  1. TOUJEO MAX [Suspect]
     Active Substance: INSULIN GLARGINE
     Indication: Type 2 diabetes mellitus
     Dosage: 130 IU, Q12H
     Route: 065

REACTIONS (5)
  - Chronic obstructive pulmonary disease [Recovering/Resolving]
  - Blood glucose abnormal [Unknown]
  - Drug dose omission by device [Unknown]
  - Device issue [Unknown]
  - Inappropriate schedule of product administration [Unknown]
